FAERS Safety Report 6634211-1 (Version None)
Quarter: 2010Q1

REPORT INFORMATION
  Report Type: 
  Country: None (occurrence: None)
  Receive Date: 20100315
  Receipt Date: 20100302
  Transmission Date: 20100710
  Serious: Yes (Hospitalization, Other)
  Sender: FDA-Public Use
  Company Number: PHHY2010US13015

PATIENT
  Age: 11 Year

DRUGS (4)
  1. METHYLPHENIDATE [Suspect]
     Dosage: 108 MG DAILY
  2. ARIPIPRAZOLE [Suspect]
     Indication: PSYCHOTIC DISORDER
     Dosage: 15 MG, BID
  3. CLONIDINE [Concomitant]
     Dosage: 0.2 MG, BID
  4. LITHIUM CARBONATE [Concomitant]
     Dosage: 600 MG EVERY MORNING AND 300 MG EVERY NIGHT

REACTIONS (7)
  - AFFECT LABILITY [None]
  - AGGRESSION [None]
  - DYSTONIA [None]
  - JOINT STIFFNESS [None]
  - MUSCLE CONTRACTURE [None]
  - SELF INJURIOUS BEHAVIOUR [None]
  - TRISMUS [None]
